FAERS Safety Report 23705237 (Version 3)
Quarter: 2024Q2

REPORT INFORMATION
  Report Type: Spontaneous
  Country: DE (occurrence: DE)
  Receive Date: 20240404
  Receipt Date: 20240426
  Transmission Date: 20240715
  Serious: Yes (Death, Life-Threatening)
  Sender: FDA-Public Use
  Company Number: DE-BoehringerIngelheim-2024-BI-019717

PATIENT

DRUGS (1)
  1. JARDIANCE [Suspect]
     Active Substance: EMPAGLIFLOZIN
     Indication: Product used for unknown indication

REACTIONS (2)
  - Euglycaemic diabetic ketoacidosis [Fatal]
  - Feeding disorder [Unknown]
